FAERS Safety Report 4721512-7 (Version None)
Quarter: 2005Q3

REPORT INFORMATION
  Report Type: 
  Country: None (occurrence: None)
  Receive Date: 20050721
  Receipt Date: 20041027
  Transmission Date: 20060218
  Serious: No
  Sender: FDA-Public Use
  Company Number: US-BRISTOL-MYERS SQUIBB COMPANY-12747960

PATIENT
  Age: 82 Year
  Sex: Female

DRUGS (1)
  1. COUMADIN [Suspect]
     Dosage: DOSE DISCR:^20 MG^ + 2MG(403008,EXP 1/07)X1WK, 5MG(405007 EXP 2/07)X3QD,10MG QD (TJ810A)EXP 5/05
     Dates: start: 20040911, end: 20040921

REACTIONS (1)
  - THERAPEUTIC RESPONSE DECREASED [None]
